FAERS Safety Report 12957122 (Version 2)
Quarter: 2016Q4

REPORT INFORMATION
  Report Type: Report from Study
  Country: AR (occurrence: AR)
  Receive Date: 20161118
  Receipt Date: 20161202
  Transmission Date: 20170207
  Serious: Yes (Death)
  Sender: FDA-Public Use
  Company Number: PHHY2016AR158687

PATIENT
  Age: 70 Year
  Sex: Male

DRUGS (1)
  1. DIOVAN D [Suspect]
     Active Substance: HYDROCHLOROTHIAZIDE\VALSARTAN
     Indication: HYPERTENSION
     Dosage: 1 DF, QD
     Route: 065

REACTIONS (8)
  - Pain [Fatal]
  - Asthenia [Fatal]
  - Ulcer [Unknown]
  - Condition aggravated [Unknown]
  - Colon cancer metastatic [Fatal]
  - Weight decreased [Fatal]
  - Lung neoplasm malignant [Fatal]
  - Oesophageal carcinoma [Fatal]

NARRATIVE: CASE EVENT DATE: 201511
